FAERS Safety Report 7144773-6 (Version None)
Quarter: 2010Q4

REPORT INFORMATION
  Report Type: 
  Country: None (occurrence: None)
  Receive Date: 20101112
  Receipt Date: 20100715
  Transmission Date: 20110411
  Serious: No
  Sender: FDA-Public Use
  Company Number: 1000015122

PATIENT
  Age: 66 Year
  Sex: Male

DRUGS (4)
  1. SAVELLA [Suspect]
     Indication: FIBROMYALGIA
     Dosage: 12.5 MG (12.5 MG, 1 IN 1 D), ORAL
     Route: 048
     Dates: start: 20100705, end: 20100705
  2. ACTOS [Concomitant]
  3. DIOVAN [Concomitant]
  4. VYTORIN [Concomitant]

REACTIONS (2)
  - DYSURIA [None]
  - URINARY RETENTION [None]
